FAERS Safety Report 14905279 (Version 1)
Quarter: 2018Q2

REPORT INFORMATION
  Report Type: Spontaneous
  Country: US (occurrence: US)
  Receive Date: 20180517
  Receipt Date: 20180517
  Transmission Date: 20180711
  Serious: No
  Sender: FDA-Public Use
  Company Number: US-SA-2017SA242097

PATIENT
  Age: 68 Year
  Sex: Female

DRUGS (4)
  1. TOUJEO [Concomitant]
     Active Substance: INSULIN GLARGINE
     Route: 065
  2. SOLOSTAR [Suspect]
     Active Substance: DEVICE
     Dates: start: 201702
  3. LANTUS SOLOSTAR [Suspect]
     Active Substance: INSULIN GLARGINE
     Indication: TYPE 2 DIABETES MELLITUS
     Dosage: DOSE:25 UNIT(S)
     Route: 051
     Dates: start: 201702
  4. SOLOSTAR [Concomitant]
     Active Substance: DEVICE

REACTIONS (5)
  - Visual impairment [Unknown]
  - Blood glucose increased [Unknown]
  - Arthropathy [Unknown]
  - Cataract [Unknown]
  - Impaired healing [Unknown]
